FAERS Safety Report 7341882-3 (Version None)
Quarter: 2011Q1

REPORT INFORMATION
  Report Type: 
  Country: None (occurrence: None)
  Receive Date: 20110309
  Receipt Date: 20101210
  Transmission Date: 20110831
  Serious: No
  Sender: FDA-Public Use
  Company Number: US-BAYER-2011-004993

PATIENT
  Age: 81 Year
  Sex: Male

DRUGS (2)
  1. ALEVE (CAPLET) [Suspect]
     Indication: ARTHRITIS
  2. ACETYLSALICYLIC ACID SRT [Concomitant]

REACTIONS (1)
  - NO ADVERSE EVENT [None]
